FAERS Safety Report 5191064-9 (Version None)
Quarter: 2006Q4

REPORT INFORMATION
  Report Type: 
  Country: None (occurrence: None)
  Receive Date: 20061218
  Receipt Date: 20061218
  Transmission Date: 20070319
  Serious: Yes (Hospitalization)
  Sender: FDA-Public Use
  Company Number: None

PATIENT
  Age: 16 Year
  Sex: Male
  Weight: 63.5036 kg

DRUGS (1)
  1. PROPOFOL [Suspect]
     Indication: SURGERY
     Dates: start: 20061214, end: 20061214

REACTIONS (2)
  - MUSCLE SPASMS [None]
  - PAIN [None]
